FAERS Safety Report 6148221-4 (Version None)
Quarter: 2009Q2

REPORT INFORMATION
  Report Type: 
  Country: None (occurrence: None)
  Receive Date: 20090402
  Receipt Date: 20081208
  Transmission Date: 20091009
  Serious: No
  Sender: FDA-Public Use
  Company Number: 1000004609

PATIENT
  Age: 86 Year
  Sex: Female

DRUGS (3)
  1. BYSTOLIC [Suspect]
     Indication: BLOOD PRESSURE INCREASED
     Dosage: 5 MG (5 MG, 1 IN 1 D), ORAL
     Route: 048
     Dates: start: 20080901
  2. LEVOTHYROXINE SODIUM [Concomitant]
  3. SPIRONOLACTONE [Concomitant]

REACTIONS (2)
  - ALOPECIA [None]
  - MUSCLE SPASMS [None]
